FAERS Safety Report 9981181 (Version 3)
Quarter: 2014Q2

REPORT INFORMATION
  Report Type: Spontaneous
  Country: GB (occurrence: GB)
  Receive Date: 20140307
  Receipt Date: 20140409
  Transmission Date: 20141212
  Serious: Yes (Other)
  Sender: FDA-Public Use
  Company Number: GB-ROCHE-1355753

PATIENT
  Age: 29 Year
  Sex: Female

DRUGS (3)
  1. HERCEPTIN [Suspect]
     Indication: PRODUCT USED FOR UNKNOWN INDICATION
     Dosage: RECEIVED 9 CYCLES
     Route: 042
  2. HERCEPTIN [Suspect]
     Route: 058
     Dates: start: 20140210
  3. HERCEPTIN [Suspect]
     Route: 042

REACTIONS (4)
  - Pain in extremity [Recovered/Resolved]
  - Injection site urticaria [Recovered/Resolved]
  - Gait disturbance [Recovered/Resolved]
  - Peripheral swelling [Recovered/Resolved]
